FAERS Safety Report 14032581 (Version 1)
Quarter: 2017Q4

REPORT INFORMATION
  Report Type: Spontaneous
  Country: US (occurrence: US)
  Receive Date: 20171002
  Receipt Date: 20171002
  Transmission Date: 20180321
  Serious: Yes (Hospitalization)
  Sender: FDA-Public Use
  Company Number: US-LPDUSPRD-20171338

PATIENT
  Age: 71 Year
  Sex: Male

DRUGS (2)
  1. OXALIPLATIN INJECTION, USP (0517-1910-01) [Suspect]
     Active Substance: OXALIPLATIN
     Dosage: UNKNOWN
     Route: 065
  2. LEUCOVORIN CALCIUM INJECTION (0517-8605-25) [Suspect]
     Active Substance: LEUCOVORIN CALCIUM
     Dosage: UNKNOWN
     Route: 065

REACTIONS (5)
  - Acute kidney injury [None]
  - Disseminated intravascular coagulation [Recovered/Resolved]
  - Haematuria [Recovered/Resolved]
  - Haemolysis [None]
  - Hypersensitivity [Recovered/Resolved]
